FAERS Safety Report 18096672 (Version 1)
Quarter: 2020Q3

REPORT INFORMATION
  Report Type: Spontaneous
  Country: US (occurrence: US)
  Receive Date: 20200731
  Receipt Date: 20200731
  Transmission Date: 20201103
  Serious: Yes (Other)
  Sender: FDA-Public Use
  Company Number: US-SA-2020SA196748

PATIENT

DRUGS (2)
  1. DUPIXENT [Suspect]
     Active Substance: DUPILUMAB
     Indication: HEPATIC CIRRHOSIS
  2. DUPIXENT [Suspect]
     Active Substance: DUPILUMAB
     Indication: HEPATITIS C
     Dosage: 300 MG, QOW
     Route: 058
     Dates: start: 20191205

REACTIONS (2)
  - Hepatitis C [Not Recovered/Not Resolved]
  - Drug ineffective for unapproved indication [Not Recovered/Not Resolved]
